FAERS Safety Report 8610852-7 (Version None)
Quarter: 2012Q3

REPORT INFORMATION
  Report Type: 
  Country: None (occurrence: None)
  Receive Date: 20120808
  Receipt Date: 20120724
  Transmission Date: 20120928
  Serious: Yes (Death, Other)
  Sender: FDA-Public Use
  Company Number: FK201202154

PATIENT
  Age: 64 Year
  Sex: Male

DRUGS (4)
  1. LEUCOVORIN CALCIUM [Concomitant]
  2. BEVACIZUMAB (BEVACIZUMAB) [Concomitant]
  3. OXALIPLATIN [Suspect]
     Indication: ADENOCARCINOMA
  4. FLUOROURACIL [Concomitant]

REACTIONS (6)
  - PYREXIA [None]
  - RESPIRATORY FAILURE [None]
  - COUGH [None]
  - HYPOXIA [None]
  - HYPERCAPNIA [None]
  - PNEUMONITIS [None]
